FAERS Safety Report 5392433-4 (Version None)
Quarter: 2007Q3

REPORT INFORMATION
  Report Type: 
  Country: None (occurrence: None)
  Receive Date: 20070720
  Receipt Date: 20070716
  Transmission Date: 20080115
  Serious: Yes (Other)
  Sender: FDA-Public Use
  Company Number: D0052606A

PATIENT
  Age: 30 Year
  Sex: Female

DRUGS (3)
  1. DARAPRIM [Suspect]
     Indication: TOXOPLASMOSIS
     Dosage: 25MG PER DAY
     Route: 048
     Dates: start: 20070226, end: 20070315
  2. SULFADIAZINE [Suspect]
     Indication: TOXOPLASMOSIS
     Dosage: 500MG FOUR TIMES PER DAY
     Route: 048
     Dates: start: 20070226, end: 20070315
  3. FOLIC ACID [Concomitant]
     Indication: PROPHYLAXIS
     Route: 065

REACTIONS (6)
  - ANAEMIA [None]
  - DELIVERY [None]
  - DRUG EXPOSURE DURING PREGNANCY [None]
  - LEUKOPENIA [None]
  - RASH [None]
  - THROMBOCYTOPENIA [None]
